FAERS Safety Report 11566555 (Version 3)
Quarter: 2015Q4

REPORT INFORMATION
  Report Type: Spontaneous
  Country: US (occurrence: US)
  Receive Date: 20150929
  Receipt Date: 20151113
  Transmission Date: 20160304
  Serious: Yes (Hospitalization)
  Sender: FDA-Public Use
  Company Number: US-HOSPIRA-3018702

PATIENT
  Age: 54 Year
  Sex: Female
  Weight: 124.1 kg

DRUGS (16)
  1. INVESTIGATIONAL DRUG [Concomitant]
     Active Substance: INVESTIGATIONAL PRODUCT
     Indication: ACUTE MYELOID LEUKAEMIA
     Route: 048
     Dates: start: 20140331
  2. DILTIAZEM [Concomitant]
     Active Substance: DILTIAZEM
     Indication: PALPITATIONS
     Dates: start: 20140510
  3. ALTEPLASE [Concomitant]
     Active Substance: ALTEPLASE
     Indication: PROPHYLAXIS
     Dates: start: 20140411
  4. DAUNORUBICIN [Suspect]
     Active Substance: DAUNORUBICIN
     Indication: MYELODYSPLASTIC SYNDROME
     Dosage: DAYS 1-3
     Route: 040
     Dates: start: 20140403, end: 20140405
  5. METOPROLOL SUCCINATE. [Concomitant]
     Active Substance: METOPROLOL SUCCINATE
     Indication: ARRHYTHMIA
     Dates: start: 20140423
  6. DILTIAZEM [Concomitant]
     Active Substance: DILTIAZEM
     Indication: ARRHYTHMIA
     Dates: start: 20140510
  7. DILTIAZEM [Concomitant]
     Active Substance: DILTIAZEM
     Indication: CHEST PAIN
     Dates: start: 20140510
  8. METOPROLOL SUCCINATE. [Concomitant]
     Active Substance: METOPROLOL SUCCINATE
     Indication: PALPITATIONS
     Dates: start: 20140423
  9. CYTARABINE. [Suspect]
     Active Substance: CYTARABINE
     Indication: ACUTE MYELOID LEUKAEMIA
     Dosage: CONSOLIDATION: 3 HOUR INFUSION, ON DAYS 1, 3 AND 5
     Route: 041
     Dates: start: 20140508, end: 20140622
  10. ACYCLOVIR                          /00587301/ [Concomitant]
     Active Substance: ACYCLOVIR
     Indication: ANTIVIRAL PROPHYLAXIS
     Dates: start: 20140317
  11. POTASSIUM CHLORIDE. [Concomitant]
     Active Substance: POTASSIUM CHLORIDE
     Indication: HYPOKALAEMIA
     Dates: start: 20140405
  12. PREDNISOLONE. [Concomitant]
     Active Substance: PREDNISOLONE
     Indication: PROPHYLAXIS
     Route: 047
     Dates: start: 20140508, end: 20140625
  13. AUGMENTIN [Concomitant]
     Active Substance: AMOXICILLIN\CLAVULANATE POTASSIUM
     Indication: ANTIBIOTIC PROPHYLAXIS
     Dates: start: 20140519
  14. MAGNESIUM OXIDE. [Concomitant]
     Active Substance: MAGNESIUM OXIDE
     Indication: HYPOMAGNESAEMIA
     Dates: start: 20140423
  15. DAUNORUBICIN [Suspect]
     Active Substance: DAUNORUBICIN
     Indication: ACUTE MYELOID LEUKAEMIA
     Dosage: DAYS 1-3
     Route: 040
     Dates: start: 20140403, end: 20140405
  16. VITAMIN D3 [Concomitant]
     Active Substance: CHOLECALCIFEROL
     Indication: VITAMIN D DEFICIENCY
     Dates: start: 20140520, end: 20140626

REACTIONS (2)
  - Perirectal abscess [Recovering/Resolving]
  - Febrile neutropenia [Recovered/Resolved]

NARRATIVE: CASE EVENT DATE: 2014
